FAERS Safety Report 7514743-4 (Version None)
Quarter: 2011Q2

REPORT INFORMATION
  Report Type: 
  Country: None (occurrence: None)
  Receive Date: 20110601
  Receipt Date: 20110513
  Transmission Date: 20111010
  Serious: Yes (Hospitalization, Other)
  Sender: FDA-Public Use
  Company Number: US-BAYER-2011-008120

PATIENT
  Age: 50 Year
  Sex: Female
  Weight: 107.48 kg

DRUGS (13)
  1. YAZ [Suspect]
     Indication: ACNE
  2. YASMIN [Suspect]
     Indication: ORAL CONTRACEPTION
  3. ZANAFLEX [Concomitant]
     Indication: FIBROMYALGIA
     Dosage: 4 MG, QD
     Route: 048
     Dates: start: 20000101, end: 20100101
  4. YAZ [Suspect]
     Indication: ORAL CONTRACEPTION
  5. YASMIN [Suspect]
     Indication: ACNE
  6. AMBIEN [Concomitant]
     Indication: FIBROMYALGIA
     Dosage: UNK
     Dates: start: 20000101, end: 20100101
  7. ACYCLOVIR [Concomitant]
     Indication: ORAL HERPES
     Dosage: 800 MG, PRN
     Route: 048
  8. CARDIZEM [Concomitant]
     Indication: BLOOD PRESSURE ABNORMAL
     Dosage: 120 MG, QD
     Route: 048
  9. SYNTHROID [Concomitant]
     Indication: THYROID DISORDER
     Dosage: 0.75 MG, QD
     Route: 048
     Dates: start: 20000101, end: 20100101
  10. ZANAFLEX [Concomitant]
     Indication: MUSCLE SPASMS
  11. DILTIAZEM [Concomitant]
     Dosage: UNK
     Dates: start: 20000101, end: 20100101
  12. FLONASE [Concomitant]
     Indication: DYSPNOEA
  13. MIDRIN [Concomitant]
     Indication: MIGRAINE
     Route: 048

REACTIONS (6)
  - INJURY [None]
  - PULMONARY EMBOLISM [None]
  - DEEP VEIN THROMBOSIS [None]
  - THROMBOSIS [None]
  - INTRACARDIAC THROMBUS [None]
  - PAIN [None]
